FAERS Safety Report 5869570-0 (Version None)
Quarter: 2008Q3

REPORT INFORMATION
  Report Type: 
  Country: None (occurrence: None)
  Receive Date: 20080902
  Receipt Date: 20080815
  Transmission Date: 20090109
  Serious: Yes (Hospitalization)
  Sender: FDA-Public Use
  Company Number: FABR-1000302

PATIENT
  Age: 58 Year
  Sex: Female
  Weight: 105 kg

DRUGS (2)
  1. FABRAZYME [Suspect]
     Indication: FABRY'S DISEASE
     Dosage: 105 MG, Q2W
     Dates: start: 20060401
  2. ORAL DIABETIC MEDICATION [Concomitant]

REACTIONS (5)
  - BLOOD GLUCOSE DECREASED [None]
  - CENTRAL LINE INFECTION [None]
  - KIDNEY INFECTION [None]
  - SEPSIS [None]
  - TREMOR [None]
